FAERS Safety Report 17935485 (Version 1)
Quarter: 2020Q2

REPORT INFORMATION
  Report Type: Spontaneous
  Country: US (occurrence: US)
  Receive Date: 20200624
  Receipt Date: 20200624
  Transmission Date: 20200714
  Serious: Yes (Life-Threatening)
  Sender: FDA-Public Use
  Company Number: None

PATIENT
  Age: 60 Year
  Sex: Male

DRUGS (1)
  1. YESCARTA [Suspect]
     Active Substance: AXICABTAGENE CILOLEUCEL
     Indication: DIFFUSE LARGE B-CELL LYMPHOMA
     Dates: start: 20200601, end: 20200601

REACTIONS (10)
  - Hyperglycaemia [None]
  - Platelet count decreased [None]
  - White blood cell count decreased [None]
  - Hiccups [None]
  - Cytokine release syndrome [None]
  - Lymphocyte adoptive therapy [None]
  - Immune effector cell-associated neurotoxicity syndrome [None]
  - Total lung capacity decreased [None]
  - Abdominal pain [None]
  - Back pain [None]

NARRATIVE: CASE EVENT DATE: 20200601
